FAERS Safety Report 8288306-X (Version None)
Quarter: 2012Q2

REPORT INFORMATION
  Report Type: 
  Country: None (occurrence: None)
  Receive Date: 20120416
  Receipt Date: 20120330
  Transmission Date: 20120825
  Serious: Yes (Other)
  Sender: FDA-Public Use
  Company Number: CHPA2012US007050

PATIENT
  Age: 73 Year
  Sex: Male

DRUGS (6)
  1. EXCEDRIN EXTRA STRENGTH TABLETS [Suspect]
     Indication: PAIN
     Dosage: 2 DF, PRN
     Route: 048
  2. PLAVIX [Concomitant]
  3. LOSARTAN POTASSIUM [Concomitant]
  4. ATORVASTATIN [Concomitant]
  5. VERAPAMIL [Concomitant]
  6. HYDROCHLOROTHIAZIDE [Concomitant]

REACTIONS (4)
  - HYPOAESTHESIA [None]
  - INAPPROPRIATE SCHEDULE OF DRUG ADMINISTRATION [None]
  - DIABETES MELLITUS [None]
  - GASTROOESOPHAGEAL REFLUX DISEASE [None]
